FAERS Safety Report 6728027-5 (Version None)
Quarter: 2010Q2

REPORT INFORMATION
  Report Type: 
  Country: None (occurrence: None)
  Receive Date: 20100517
  Receipt Date: 20100506
  Transmission Date: 20101027
  Serious: Yes (Death, Hospitalization)
  Sender: FDA-Public Use
  Company Number: US-MERCK-1001USA03811

PATIENT
  Age: 51 Year
  Sex: Female

DRUGS (4)
  1. FOSAMAX [Suspect]
     Indication: OSTEOPOROSIS
     Route: 048
     Dates: end: 20080401
  2. FOSAMAX [Suspect]
     Route: 048
     Dates: end: 20071029
  3. FOSAMAX [Suspect]
     Indication: OSTEOPENIA
     Route: 048
     Dates: end: 20080401
  4. FOSAMAX [Suspect]
     Route: 048
     Dates: end: 20071029

REACTIONS (82)
  - ABDOMINAL PAIN [None]
  - ABSCESS ORAL [None]
  - ANORECTAL DISORDER [None]
  - ANXIETY [None]
  - AORTIC VALVE INCOMPETENCE [None]
  - ARRHYTHMIA [None]
  - ARTHRITIS [None]
  - ARTHROPATHY [None]
  - BACK PAIN [None]
  - BENIGN BREAST NEOPLASM [None]
  - BLADDER DISORDER [None]
  - BREAST CALCIFICATIONS [None]
  - BREAST DISORDER [None]
  - BREAST MASS [None]
  - BRONCHITIS [None]
  - CATARACT [None]
  - CELLULITIS [None]
  - CHRONIC OBSTRUCTIVE PULMONARY DISEASE [None]
  - COLON ADENOMA [None]
  - COLONIC POLYP [None]
  - CONSTIPATION [None]
  - CONTUSION [None]
  - DENTAL CARIES [None]
  - DEPRESSION [None]
  - DIARRHOEA [None]
  - DIVERTICULUM [None]
  - DIVERTICULUM INTESTINAL [None]
  - DRUG TOXICITY [None]
  - DYSPEPSIA [None]
  - ELECTROCARDIOGRAM ABNORMAL [None]
  - EOSINOPHIL COUNT INCREASED [None]
  - ERYSIPELAS [None]
  - FALL [None]
  - FATIGUE [None]
  - GALLBLADDER DISORDER [None]
  - GASTRIC ULCER [None]
  - GASTRITIS [None]
  - GASTROINTESTINAL MOTILITY DISORDER [None]
  - GINGIVAL BLEEDING [None]
  - GINGIVAL PAIN [None]
  - HAEMATOTYMPANUM [None]
  - HELICOBACTER INFECTION [None]
  - HIATUS HERNIA [None]
  - HYPERCALCAEMIA [None]
  - HYPERGLYCAEMIA [None]
  - HYPERLIPIDAEMIA [None]
  - HYPERSENSITIVITY [None]
  - IMPAIRED HEALING [None]
  - INFECTION [None]
  - INSOMNIA [None]
  - IRRITABLE BOWEL SYNDROME [None]
  - JOINT SWELLING [None]
  - LOOSE TOOTH [None]
  - LYMPHADENOPATHY [None]
  - MASS [None]
  - OBESITY [None]
  - OEDEMA PERIPHERAL [None]
  - ORAL PAIN [None]
  - OSTEOARTHRITIS [None]
  - OSTEOMYELITIS [None]
  - OSTEONECROSIS OF JAW [None]
  - PANIC ATTACK [None]
  - PHARYNGITIS STREPTOCOCCAL [None]
  - PNEUMONIA [None]
  - POLYP [None]
  - POLYP COLORECTAL [None]
  - POST PROCEDURAL HAEMATOMA [None]
  - PULMONARY GRANULOMA [None]
  - SALIVARY DUCT OBSTRUCTION [None]
  - SENSITIVITY OF TEETH [None]
  - SIALOADENITIS [None]
  - SMALL INTESTINAL OBSTRUCTION [None]
  - STOMATITIS [None]
  - TONGUE OEDEMA [None]
  - TOOTH ABSCESS [None]
  - TOOTH FRACTURE [None]
  - TOOTHACHE [None]
  - TUBERCULIN TEST POSITIVE [None]
  - UMBILICAL HERNIA [None]
  - UPPER RESPIRATORY TRACT INFECTION [None]
  - URINARY INCONTINENCE [None]
  - WEIGHT INCREASED [None]
